FAERS Safety Report 6660394-3 (Version None)
Quarter: 2010Q1

REPORT INFORMATION
  Report Type: 
  Country: None (occurrence: None)
  Receive Date: 20100330
  Receipt Date: 20100330
  Transmission Date: 20100710
  Serious: Yes (Disabling)
  Sender: FDA-Public Use
  Company Number: None

PATIENT
  Sex: Male
  Weight: 102.0593 kg

DRUGS (1)
  1. METHYLPREDNISOLONE [Suspect]
     Indication: RASH
     Dosage: 1 P/DAY 4 MG 6 PILLS COMPLETE
     Dates: start: 20100202, end: 20100204

REACTIONS (4)
  - DIZZINESS [None]
  - VERTIGO [None]
  - VOMITING [None]
  - WALKING AID USER [None]
